FAERS Safety Report 10051818 (Version 2)
Quarter: 2014Q2

REPORT INFORMATION
  Report Type: Report from Study
  Country: US (occurrence: US)
  Receive Date: 20140402
  Receipt Date: 20140411
  Transmission Date: 20141212
  Serious: Yes (Hospitalization, Other)
  Sender: FDA-Public Use
  Company Number: US-AMGEN-USACT2014021905

PATIENT
  Age: 24 Year
  Sex: 0
  Weight: 98.34 kg

DRUGS (5)
  1. PANITUMUMAB [Suspect]
     Indication: COLORECTAL CANCER METASTATIC
     Dosage: 6 MG/KG, Q2WK
     Route: 042
     Dates: start: 20140207, end: 20140207
  2. ERLOTINIB [Concomitant]
     Indication: COLORECTAL CANCER METASTATIC
     Dosage: 150 MG, QD
     Dates: start: 20140207, end: 20140320
  3. REMERON [Concomitant]
     Dosage: 45 MG, QD
  4. MINOCYCLINE [Concomitant]
     Dosage: 100 MG, Q12H
  5. ACLOVATE [Concomitant]
     Dosage: UNK UNK, BID
     Route: 061

REACTIONS (3)
  - Anaemia [Recovered/Resolved]
  - Small intestinal obstruction [Not Recovered/Not Resolved]
  - Colonic fistula [Not Recovered/Not Resolved]
